FAERS Safety Report 8517866-6 (Version None)
Quarter: 2012Q3

REPORT INFORMATION
  Report Type: 
  Country: None (occurrence: None)
  Receive Date: 20120718
  Receipt Date: 20110623
  Transmission Date: 20120928
  Serious: No
  Sender: FDA-Public Use
  Company Number: US-BRISTOL-MYERS SQUIBB COMPANY-15852049

PATIENT
  Age: 81 Year
  Sex: Female

DRUGS (6)
  1. WARFARIN SODIUM [Suspect]
  2. CRESTOR [Concomitant]
  3. DIOVAN [Concomitant]
  4. DIGOXIN [Concomitant]
  5. KLOR-CON [Concomitant]
  6. DILTIAZEM HCL [Concomitant]

REACTIONS (1)
  - ALOPECIA [None]
